FAERS Safety Report 6196050-8 (Version None)
Quarter: 2009Q2

REPORT INFORMATION
  Report Type: 
  Country: None (occurrence: None)
  Receive Date: 20090520
  Receipt Date: 20040604
  Transmission Date: 20091009
  Serious: Yes (Hospitalization)
  Sender: FDA-Public Use
  Company Number: NL-ROCHE-601661

PATIENT
  Sex: Male

DRUGS (3)
  1. CAPECITABINE [Suspect]
     Route: 048
     Dates: start: 20030714
  2. CAPECITABINE [Suspect]
     Route: 048
     Dates: start: 20031008, end: 20031113
  3. CAPECITABINE [Suspect]
     Dosage: THERAPY REPORTED AS 2 X 2150MG.
     Route: 048
     Dates: start: 20040517, end: 20040531

REACTIONS (2)
  - FISTULA [None]
  - INTESTINAL FISTULA [None]
